FAERS Safety Report 18335153 (Version 1)
Quarter: 2020Q4

REPORT INFORMATION
  Report Type: Spontaneous
  Country: US (occurrence: US)
  Receive Date: 20201001
  Receipt Date: 20201001
  Transmission Date: 20210113
  Serious: No
  Sender: FDA-Public Use
  Company Number: None

PATIENT
  Age: 68 Year
  Sex: Male
  Weight: 83.25 kg

DRUGS (1)
  1. REMDESIVIR. [Suspect]
     Active Substance: REMDESIVIR
     Indication: COVID-19
     Route: 041
     Dates: start: 20200907, end: 20200910

REACTIONS (2)
  - Product dose omission issue [None]
  - Wrong technique in product usage process [None]

NARRATIVE: CASE EVENT DATE: 20200908
